FAERS Safety Report 8548293-3 (Version None)
Quarter: 2012Q3

REPORT INFORMATION
  Report Type: 
  Country: None (occurrence: None)
  Receive Date: 20120730
  Receipt Date: 20120718
  Transmission Date: 20120928
  Serious: Yes (Other)
  Sender: FDA-Public Use
  Company Number: US-JNJFOC-20111112711

PATIENT
  Sex: Female
  Weight: 68 kg

DRUGS (5)
  1. REMICADE [Suspect]
     Indication: CROHN'S DISEASE
     Route: 042
  2. REMICADE [Suspect]
     Route: 042
     Dates: start: 20020402
  3. AZATHIOPRINE [Concomitant]
  4. PREDNISONE [Concomitant]
  5. MESALAMINE [Concomitant]

REACTIONS (1)
  - SKIN CANCER [None]
